FAERS Safety Report 7302349-1 (Version None)
Quarter: 2011Q1

REPORT INFORMATION
  Report Type: 
  Country: None (occurrence: None)
  Receive Date: 20110218
  Receipt Date: 20110209
  Transmission Date: 20110831
  Serious: Yes (Hospitalization)
  Sender: FDA-Public Use
  Company Number: US-ASTRAZENECA-2011SE07923

PATIENT
  Sex: Female

DRUGS (3)
  1. FULVESTRANT [Suspect]
     Indication: BREAST CANCER
     Route: 030
     Dates: start: 20100812
  2. DASATIMIB [Suspect]
     Indication: BREAST CANCER
     Route: 048
     Dates: end: 20100813
  3. DASATIMIB [Suspect]
     Route: 048
     Dates: start: 20100816

REACTIONS (5)
  - PNEUMONIA [None]
  - INFECTION [None]
  - PLEURAL EFFUSION [None]
  - DYSPNOEA [None]
  - NEUTROPHIL COUNT DECREASED [None]
